FAERS Safety Report 21642643 (Version 1)
Quarter: 2022Q4

REPORT INFORMATION
  Report Type: Spontaneous
  Country: US (occurrence: US)
  Receive Date: 20221125
  Receipt Date: 20221125
  Transmission Date: 20230112
  Serious: Yes (Other)
  Sender: FDA-Public Use
  Company Number: US-Accord-287404

PATIENT
  Sex: Female

DRUGS (1)
  1. METHYLPHENIDATE HYDROCHLORIDE [Suspect]
     Active Substance: METHYLPHENIDATE HYDROCHLORIDE
     Indication: Fatigue
     Dosage: 10MG 2 IN AM AND 1 IN AFTERNOON

REACTIONS (4)
  - Coeliac disease [Recovering/Resolving]
  - Condition aggravated [Recovering/Resolving]
  - Product substitution issue [Unknown]
  - Off label use [Unknown]
